FAERS Safety Report 17813713 (Version 1)
Quarter: 2020Q2

REPORT INFORMATION
  Report Type: Spontaneous
  Country: AT (occurrence: AT)
  Receive Date: 20200521
  Receipt Date: 20200521
  Transmission Date: 20200714
  Serious: Yes (Hospitalization, Other)
  Sender: FDA-Public Use
  Company Number: AT-BRISTOL-MYERS SQUIBB COMPANY-BMS-2020-039234

PATIENT
  Age: 52 Year
  Sex: Female
  Weight: 60 kg

DRUGS (1)
  1. OPDIVO [Suspect]
     Active Substance: NIVOLUMAB
     Indication: VULVAL CANCER
     Dosage: 240 MG, EVERY TWO WEEKS
     Route: 042
     Dates: start: 20200312, end: 20200507

REACTIONS (3)
  - Intentional product use issue [Unknown]
  - Immune-mediated pneumonitis [Not Recovered/Not Resolved]
  - Pulmonary vasculitis [Not Recovered/Not Resolved]

NARRATIVE: CASE EVENT DATE: 20200510
